FAERS Safety Report 18308823 (Version 5)
Quarter: 2020Q4

REPORT INFORMATION
  Report Type: Spontaneous
  Country: CN (occurrence: CN)
  Receive Date: 20200924
  Receipt Date: 20201109
  Transmission Date: 20210113
  Serious: Yes (Hospitalization, Other)
  Sender: FDA-Public Use
  Company Number: CN-ASTRAZENECA-2020SF22702

PATIENT
  Age: 62 Year
  Sex: Male

DRUGS (5)
  1. BUDESONIDE, GLYCOPYRRONIUM BROMIDE AND FORMOTEROL FUMARATE [Suspect]
     Active Substance: BUDESONIDE\FORMOTEROL\GLYCOPYRRONIUM
     Dosage: UNKNOWN DOSE AND FREQUENCY
     Route: 055
  2. SETOTROPIUM BROMIDE [Concomitant]
     Indication: INHALATION THERAPY
     Route: 065
  3. SYMBICORT [Suspect]
     Active Substance: BUDESONIDE\FORMOTEROL FUMARATE DIHYDRATE
     Indication: INHALATION THERAPY
     Dosage: 160/4.5 MCG, TWO INHALATION, TWO TIMES A DAY
     Route: 055
  4. SETOTROPIUM BROMIDE [Concomitant]
     Indication: CHRONIC OBSTRUCTIVE PULMONARY DISEASE
     Route: 065
  5. SYMBICORT [Suspect]
     Active Substance: BUDESONIDE\FORMOTEROL FUMARATE DIHYDRATE
     Indication: CHRONIC OBSTRUCTIVE PULMONARY DISEASE
     Dosage: 160/4.5 MCG, TWO INHALATION, TWO TIMES A DAY
     Route: 055

REACTIONS (5)
  - Chronic obstructive pulmonary disease [Recovered/Resolved]
  - Asthma [Unknown]
  - Condition aggravated [Unknown]
  - Inability to afford medication [Unknown]
  - Intentional product misuse [Unknown]
